FAERS Safety Report 10219141 (Version 1)
Quarter: 2014Q2

REPORT INFORMATION
  Report Type: Report from Study
  Country: BR (occurrence: BR)
  Receive Date: 20140605
  Receipt Date: 20140605
  Transmission Date: 20141212
  Serious: Yes (Hospitalization)
  Sender: FDA-Public Use
  Company Number: PHHY2014BR066994

PATIENT
  Sex: Female
  Weight: 84 kg

DRUGS (2)
  1. GALVUS [Suspect]
     Indication: DIABETES MELLITUS
     Dosage: 1 DF DAILY
  2. METFORMIN [Suspect]
     Indication: DIABETES MELLITUS
     Dosage: 2 DF DAILY

REACTIONS (2)
  - Varicose vein [Unknown]
  - Abasia [Unknown]
